FAERS Safety Report 9290609 (Version 1)
Quarter: 2013Q2

REPORT INFORMATION
  Report Type: Spontaneous
  Country: US (occurrence: None)
  Receive Date: 20130514
  Receipt Date: 20130514
  Transmission Date: 20140414
  Serious: Yes (Hospitalization)
  Sender: FDA-Public Use
  Company Number: None

PATIENT
  Age: 79 Year
  Sex: Male
  Weight: 123.8 kg

DRUGS (1)
  1. TRANEXAMIC ACID [Suspect]
     Indication: KNEE ARTHROPLASTY
     Route: 042
     Dates: start: 20130507, end: 20130507

REACTIONS (1)
  - Pulmonary embolism [None]
